FAERS Safety Report 14517236 (Version 1)
Quarter: 2018Q1

REPORT INFORMATION
  Report Type: Spontaneous
  Country: US (occurrence: US)
  Receive Date: 20180209
  Receipt Date: 20180209
  Transmission Date: 20180509
  Serious: No
  Sender: FDA-Public Use
  Company Number: None

PATIENT
  Age: 47 Year
  Sex: Female

DRUGS (1)
  1. GLATIRAMER 40MG PFS INJ (12/BOX) [Suspect]
     Active Substance: GLATIRAMER

REACTIONS (4)
  - Burning sensation [None]
  - Confusional state [None]
  - Memory impairment [None]
  - Pruritus [None]

NARRATIVE: CASE EVENT DATE: 20180101
